FAERS Safety Report 4363942-1 (Version None)
Quarter: 2004Q2

REPORT INFORMATION
  Report Type: 
  Country: None (occurrence: None)
  Receive Date: 20040520
  Receipt Date: 20040112
  Transmission Date: 20050107
  Serious: No
  Sender: FDA-Public Use
  Company Number: 2004-06565

PATIENT
  Sex: Female

DRUGS (1)
  1. HEPSERA [Suspect]
     Dosage: ORAL
     Route: 048
     Dates: start: 20031001

REACTIONS (1)
  - DYSGEUSIA [None]
